FAERS Safety Report 12920849 (Version 4)
Quarter: 2016Q4

REPORT INFORMATION
  Report Type: Spontaneous
  Country: US (occurrence: US)
  Receive Date: 20161107
  Receipt Date: 20161116
  Transmission Date: 20170207
  Serious: Yes (Other)
  Sender: FDA-Public Use
  Company Number: US-CELGENEUS-USA-2016108547

PATIENT
  Sex: Male

DRUGS (8)
  1. POMALYST [Suspect]
     Active Substance: POMALIDOMIDE
     Indication: PLASMA CELL MYELOMA
     Route: 048
     Dates: start: 201402
  2. POMALYST [Suspect]
     Active Substance: POMALIDOMIDE
     Route: 048
     Dates: start: 201405
  3. DEXAMETHASONE. [Suspect]
     Active Substance: DEXAMETHASONE
     Indication: PRODUCT USED FOR UNKNOWN INDICATION
     Route: 065
  4. POMALYST [Suspect]
     Active Substance: POMALIDOMIDE
     Route: 048
     Dates: start: 201404
  5. ZOMETA [Concomitant]
     Active Substance: ZOLEDRONIC ACID
     Indication: BONE DISORDER
     Route: 065
  6. TYLENOL EXTRA STRENGTH [Concomitant]
     Active Substance: ACETAMINOPHEN
     Indication: PAIN
     Route: 065
  7. OXYGEN. [Concomitant]
     Active Substance: OXYGEN
     Indication: ALVEOLAR OXYGEN PARTIAL PRESSURE DECREASED
     Route: 065
  8. TYLENOL EXTRA STRENGTH [Concomitant]
     Active Substance: ACETAMINOPHEN
     Indication: DISCOMFORT

REACTIONS (11)
  - Heart rate decreased [Unknown]
  - Arthralgia [Unknown]
  - Fatigue [Unknown]
  - Spinal compression fracture [Unknown]
  - Full blood count decreased [Unknown]
  - Blood creatinine increased [Unknown]
  - Renal failure [Unknown]
  - Alveolar oxygen partial pressure decreased [Unknown]
  - Back pain [Unknown]
  - Pain [Unknown]
  - Plasma cell myeloma recurrent [Unknown]

NARRATIVE: CASE EVENT DATE: 2014
